FAERS Safety Report 5663116-8 (Version None)
Quarter: 2008Q1

REPORT INFORMATION
  Report Type: 
  Country: None (occurrence: None)
  Receive Date: 20080313
  Receipt Date: 20080304
  Transmission Date: 20080703
  Serious: Yes (Disabling)
  Sender: FDA-Public Use
  Company Number: B0500667A

PATIENT
  Age: 57 Year
  Sex: Male

DRUGS (4)
  1. AVANDIA [Suspect]
     Indication: DRUG USE FOR UNKNOWN INDICATION
     Route: 048
  2. BISOPROLOL FUMARATE [Concomitant]
  3. CINNARIZINE [Concomitant]
  4. IRBESARTAN [Concomitant]

REACTIONS (3)
  - CHOROIDITIS [None]
  - EYE SWELLING [None]
  - PAPILLOEDEMA [None]
